FAERS Safety Report 19073333 (Version 1)
Quarter: 2021Q1

REPORT INFORMATION
  Report Type: Report from Study
  Country: US (occurrence: US)
  Receive Date: 20210330
  Receipt Date: 20210330
  Transmission Date: 20210420
  Serious: Yes (Other)
  Sender: FDA-Public Use
  Company Number: US-PFIZER INC-2021329420

PATIENT
  Age: 35 Year
  Sex: Male

DRUGS (2)
  1. PENTAMIDINE ISETHIONATE. [Interacting]
     Active Substance: PENTAMIDINE ISETHIONATE
     Indication: PNEUMOCYSTIS JIROVECII PNEUMONIA
     Dosage: 4 MG/KG, DAILY
     Route: 042
  2. FLUCONAZOLE. [Suspect]
     Active Substance: FLUCONAZOLE
     Dosage: UNK

REACTIONS (4)
  - Electrocardiogram QT interval abnormal [Unknown]
  - Creatinine renal clearance increased [Unknown]
  - Tachycardia [Unknown]
  - Drug interaction [Unknown]
